FAERS Safety Report 19487816 (Version 1)
Quarter: 2021Q3

REPORT INFORMATION
  Report Type: Spontaneous
  Country: BR (occurrence: BR)
  Receive Date: 20210702
  Receipt Date: 20210702
  Transmission Date: 20211014
  Serious: Yes (Hospitalization)
  Sender: FDA-Public Use
  Company Number: BR-ASTRAZENECA-2021A567277

PATIENT
  Age: 10 Year
  Sex: Female

DRUGS (1)
  1. LOSEC [Suspect]
     Active Substance: OMEPRAZOLE
     Dosage: ONE TABLET IN THE MORNING AND ONE TABLET AT NIGHT
     Route: 048
     Dates: start: 202104

REACTIONS (2)
  - Gastric disorder [Not Recovered/Not Resolved]
  - Drug ineffective [Unknown]

NARRATIVE: CASE EVENT DATE: 2021
